FAERS Safety Report 26001686 (Version 1)
Quarter: 2025Q4

REPORT INFORMATION
  Report Type: Spontaneous
  Country: US (occurrence: None)
  Receive Date: 20251105
  Receipt Date: 20251105
  Transmission Date: 20260118
  Serious: Yes (Hospitalization)
  Sender: FDA-CTU
  Company Number: None

PATIENT
  Sex: Male

DRUGS (1)
  1. DEFERASIROX [Suspect]
     Active Substance: DEFERASIROX
     Indication: Haemochromatosis
     Dosage: 360 MG 5 TIMES A DAY ORAL ?
     Route: 048
     Dates: start: 20240118

REACTIONS (3)
  - Pain [None]
  - Blood iron increased [None]
  - Haemoglobin decreased [None]
